FAERS Safety Report 8273435-7 (Version None)
Quarter: 2012Q2

REPORT INFORMATION
  Report Type: 
  Country: None (occurrence: None)
  Receive Date: 20120411
  Receipt Date: 20120403
  Transmission Date: 20120825
  Serious: Yes (Hospitalization, Other)
  Sender: FDA-Public Use
  Company Number: CH-B.I. PHARMACEUTICALS,INC./RIDGEFIELD-2012-AP-00281SI

PATIENT
  Age: 83 Year
  Sex: Female

DRUGS (2)
  1. NORVASC [Concomitant]
     Indication: HYPERTENSION
  2. CLONIDINE [Suspect]
     Indication: HYPERTENSIVE CRISIS
     Dosage: 150 MCG
     Route: 042
     Dates: start: 20111201, end: 20111201

REACTIONS (2)
  - COMA [None]
  - MIOSIS [None]
